FAERS Safety Report 7473635-X (Version None)
Quarter: 2011Q1

REPORT INFORMATION
  Report Type: 
  Country: None (occurrence: None)
  Receive Date: 20110302
  Receipt Date: 20100809
  Transmission Date: 20110831
  Serious: Yes (Other)
  Sender: FDA-Public Use
  Company Number: 163-21880-10052082

PATIENT
  Age: 64 Year
  Sex: Male

DRUGS (12)
  1. CENTRUM SILVER (CENTRUM SILVER) [Concomitant]
  2. REVLIMID [Suspect]
     Indication: MULTIPLE MYELOMA
     Dosage: 10 MG, DAILY, PO, 25 MG, DAILY, PO, 5 MG, DAILY, PO, 5 MG, DAILY FOR 21 DAYS, OFF 7 DAYS, PO
     Route: 048
     Dates: start: 20090601, end: 20090801
  3. REVLIMID [Suspect]
     Indication: MULTIPLE MYELOMA
     Dosage: 10 MG, DAILY, PO, 25 MG, DAILY, PO, 5 MG, DAILY, PO, 5 MG, DAILY FOR 21 DAYS, OFF 7 DAYS, PO
     Route: 048
     Dates: start: 20100331
  4. REVLIMID [Suspect]
     Indication: MULTIPLE MYELOMA
     Dosage: 10 MG, DAILY, PO, 25 MG, DAILY, PO, 5 MG, DAILY, PO, 5 MG, DAILY FOR 21 DAYS, OFF 7 DAYS, PO
     Route: 048
     Dates: start: 20090801, end: 20100401
  5. REVLIMID [Suspect]
     Indication: MULTIPLE MYELOMA
     Dosage: 10 MG, DAILY, PO, 25 MG, DAILY, PO, 5 MG, DAILY, PO, 5 MG, DAILY FOR 21 DAYS, OFF 7 DAYS, PO
     Route: 048
     Dates: start: 20080501, end: 20080101
  6. DEXAMETHASONE [Concomitant]
  7. TESTOSTERONE [Concomitant]
  8. NEXIUM [Concomitant]
  9. MILK OF MAGNESIA TAB [Concomitant]
  10. MS CONTIN [Concomitant]
  11. ASPIRIN [Concomitant]
  12. BACTRIM [Concomitant]

REACTIONS (8)
  - NEUROFIBROMA [None]
  - HYPERHIDROSIS [None]
  - DYSPHEMIA [None]
  - MUSCLE SPASMS [None]
  - FATIGUE [None]
  - PANCYTOPENIA [None]
  - HOT FLUSH [None]
  - MYALGIA [None]
